FAERS Safety Report 13733887 (Version 2)
Quarter: 2017Q3

REPORT INFORMATION
  Report Type: Spontaneous
  Country: US (occurrence: US)
  Receive Date: 20170707
  Receipt Date: 20170728
  Transmission Date: 20171127
  Serious: Yes (Other)
  Sender: FDA-Public Use
  Company Number: US-009507513-1706USA008738

PATIENT
  Age: 56 Year
  Sex: Female

DRUGS (2)
  1. ZEPATIER [Suspect]
     Active Substance: ELBASVIR\GRAZOPREVIR
     Indication: CHRONIC HEPATITIS C
     Dosage: 50/100MG, ONCE DAILY
     Route: 048
     Dates: start: 20170428
  2. REBETOL [Suspect]
     Active Substance: RIBAVIRIN
     Route: 048

REACTIONS (1)
  - Pruritus generalised [Unknown]

NARRATIVE: CASE EVENT DATE: 20170610
